FAERS Safety Report 5899712-2 (Version None)
Quarter: 2008Q3

REPORT INFORMATION
  Report Type: 
  Country: None (occurrence: None)
  Receive Date: 20080919
  Receipt Date: 20080910
  Transmission Date: 20090109
  Serious: Yes (Hospitalization)
  Sender: FDA-Public Use
  Company Number: WSDF_00742

PATIENT
  Age: 79 Year
  Sex: Male
  Weight: 95.2554 kg

DRUGS (8)
  1. WINRHO SDF [Suspect]
     Indication: IDIOPATHIC THROMBOCYTOPENIC PURPURA
     Dosage: 10.5 ?G/KG ONCE IV
     Route: 042
     Dates: start: 20080519, end: 20080519
  2. PREDNISONE [Concomitant]
  3. GLUCOPHAGE [Concomitant]
  4. PRANDIN [Concomitant]
  5. INSULIN [Concomitant]
  6. ACTOS [Concomitant]
  7. FOLIC ACID [Concomitant]
  8. LEXAPRO [Concomitant]

REACTIONS (1)
  - ANAEMIA HAEMOLYTIC AUTOIMMUNE [None]
